FAERS Safety Report 12148960 (Version 3)
Quarter: 2016Q2

REPORT INFORMATION
  Report Type: Report from Study
  Country: US (occurrence: US)
  Receive Date: 20160304
  Receipt Date: 20160415
  Transmission Date: 20160815
  Serious: Yes (Hospitalization)
  Sender: FDA-Public Use
  Company Number: US-KADMON PHARMACEUTICALS, LLC-KAD201603-000792

PATIENT
  Age: 56 Year
  Sex: Female
  Weight: 100.6 kg

DRUGS (13)
  1. ACTONEL [Concomitant]
     Active Substance: RISEDRONATE SODIUM
  2. PERCOCET (TYLOX) [Concomitant]
     Indication: ARTHRALGIA
  3. VISTARIL [Concomitant]
     Active Substance: HYDROXYZINE PAMOATE
  4. RIBAVIRIN. [Suspect]
     Active Substance: RIBAVIRIN
     Route: 048
     Dates: end: 20151109
  5. VIEKIRA PAK [Suspect]
     Active Substance: DASABUVIR\OMBITASVIR\PARITAPREVIR\RITONAVIR
     Indication: HEPATITIS C
     Dosage: TABLET
     Route: 048
     Dates: start: 20150824, end: 20151109
  6. LEVEMIR [Concomitant]
     Active Substance: INSULIN DETEMIR
  7. LACTULOSE. [Concomitant]
     Active Substance: LACTULOSE
  8. FLEXERIL [Concomitant]
     Active Substance: CYCLOBENZAPRINE HYDROCHLORIDE
  9. METFORMIN [Concomitant]
     Active Substance: METFORMIN HYDROCHLORIDE
  10. OMEPRAZOLE. [Concomitant]
     Active Substance: OMEPRAZOLE
  11. RIBAVIRIN. [Suspect]
     Active Substance: RIBAVIRIN
     Indication: HEPATITIS C
     Route: 048
     Dates: start: 20150824
  12. INSULIN ASPART [Concomitant]
     Active Substance: INSULIN ASPART
  13. SPIRONOL [Concomitant]
     Active Substance: SPIRONOLACTONE

REACTIONS (1)
  - Escherichia sepsis [Unknown]

NARRATIVE: CASE EVENT DATE: 20151009
